FAERS Safety Report 7918827-8 (Version None)
Quarter: 2011Q4

REPORT INFORMATION
  Report Type: 
  Country: None (occurrence: None)
  Receive Date: 20111116
  Receipt Date: 20111104
  Transmission Date: 20120403
  Serious: Yes (Hospitalization)
  Sender: FDA-Public Use
  Company Number: PHHY2011GB097446

PATIENT
  Age: 57 Year
  Sex: Female

DRUGS (10)
  1. BETAHISTINE [Concomitant]
     Dosage: UNK
  2. SODIUM DOCUSATE [Concomitant]
     Dosage: UNK
  3. PROCHLORPERAZINE [Concomitant]
     Dosage: UNK
  4. ACETAMINOPHEN [Concomitant]
     Dosage: UNK
  5. PREDNISOLONE [Suspect]
     Indication: VASCULITIS
     Dosage: 20 MG, UNK
     Route: 048
     Dates: start: 20111018, end: 20111018
  6. ALBUTEROL SULFATE AUTOHALER [Concomitant]
     Dosage: UNK
  7. WARFARIN SODIUM [Concomitant]
     Dosage: UNK
  8. FLUTICASONE PROPIONATE/SALMETEROL [Concomitant]
     Dosage: UNK
  9. SENNA [Concomitant]
     Dosage: UNK
  10. CODEINE PHOSPHATE [Suspect]
     Indication: PAIN
     Dosage: 30 MG, UNK
     Route: 048
     Dates: start: 20111014, end: 20111019

REACTIONS (4)
  - MUSCULAR WEAKNESS [None]
  - MALAISE [None]
  - HEADACHE [None]
  - MYALGIA [None]
